FAERS Safety Report 23782804 (Version 1)
Quarter: 2024Q2

REPORT INFORMATION
  Report Type: Spontaneous
  Country: US (occurrence: US)
  Receive Date: 20240425
  Receipt Date: 20240425
  Transmission Date: 20240716
  Serious: No
  Sender: FDA-Public Use
  Company Number: US-NOVEN PHARMACEUTICALS, INC.-2023-NOV-US000509

PATIENT
  Age: 10 Year
  Sex: Female

DRUGS (1)
  1. DAYTRANA [Suspect]
     Active Substance: METHYLPHENIDATE
     Indication: Attention deficit hyperactivity disorder
     Dosage: 30 MG/9 HOURS, 1 PATCH DAILY
     Route: 062
     Dates: start: 20230510

REACTIONS (10)
  - Therapeutic product effect decreased [Not Recovered/Not Resolved]
  - Device difficult to use [Not Recovered/Not Resolved]
  - Product administered at inappropriate site [Not Recovered/Not Resolved]
  - Device use issue [Unknown]
  - Adhesive tape use [Not Recovered/Not Resolved]
  - Wrong technique in product usage process [Not Recovered/Not Resolved]
  - Accidental exposure to product [Recovered/Resolved]
  - Product adhesion issue [Not Recovered/Not Resolved]
  - Product residue present [Not Recovered/Not Resolved]
  - Device adhesion issue [Recovered/Resolved]

NARRATIVE: CASE EVENT DATE: 20230501
